FAERS Safety Report 13136042 (Version 1)
Quarter: 2017Q1

REPORT INFORMATION
  Report Type: Spontaneous
  Country: ES (occurrence: ES)
  Receive Date: 20170120
  Receipt Date: 20170120
  Transmission Date: 20170428
  Serious: Yes (Hospitalization)
  Sender: FDA-Public Use
  Company Number: ES-VERNALIS THERAPEUTICS, INC.-2017VRN00001

PATIENT
  Age: 2 Year
  Sex: Male

DRUGS (3)
  1. CEFIXIME. [Suspect]
     Active Substance: CEFIXIME
     Indication: PNEUMONIA
     Dosage: 50 MG, EVERY 12 HOURS
     Route: 065
  2. CLOPERASTINE [Suspect]
     Active Substance: CLOPERASTINE
     Route: 065
  3. CODEINE [Suspect]
     Active Substance: CODEINE
     Route: 065

REACTIONS (2)
  - Agranulocytosis [Recovered/Resolved]
  - Hypoalbuminaemia [Recovered/Resolved]
